FAERS Safety Report 8499732-8 (Version None)
Quarter: 2012Q2

REPORT INFORMATION
  Report Type: 
  Country: None (occurrence: None)
  Receive Date: 20120629
  Receipt Date: 20120619
  Transmission Date: 20120825
  Serious: Yes (Other)
  Sender: FDA-Public Use
  Company Number: 2012JP006666

PATIENT
  Age: 45 Year
  Sex: Female
  Weight: 70 kg

DRUGS (7)
  1. KYTRIL [Concomitant]
  2. DECADRON (DEXAMETHSONE) [Concomitant]
  3. ALOXI [Suspect]
     Indication: PROPHYLAXIS OF NAUSEA AND VOMITING
     Dosage: 0.75 MG, SINGLE, INTRAVENOUS
     Route: 042
     Dates: start: 20110614, end: 20110614
  4. ALOXI [Suspect]
     Indication: PROPHYLAXIS OF NAUSEA AND VOMITING
     Dosage: 0.75 MG, SINGLE, INTRAVENOUS
     Route: 042
     Dates: start: 20110706, end: 20110706
  5. DEXAMETHASONE SODIUM PHOSPHATE [Concomitant]
  6. DOCETAXEL [Suspect]
     Indication: BREAST CANCER
     Dosage: 75 MG/M2, QD, IV DRIP
     Route: 041
     Dates: start: 20110614, end: 20110614
  7. DOCETAXEL [Suspect]
     Indication: BREAST CANCER
     Dosage: 75 MG/M2, QD, IV DRIP
     Route: 041
     Dates: start: 20110706, end: 20110706

REACTIONS (1)
  - ANAPHYLACTOID REACTION [None]
